FAERS Safety Report 18058168 (Version 5)
Quarter: 2020Q4

REPORT INFORMATION
  Report Type: Report from Study
  Country: FR (occurrence: FR)
  Receive Date: 20200723
  Receipt Date: 20201231
  Transmission Date: 20210113
  Serious: Yes (Congenital Anomaly, Other)
  Sender: FDA-Public Use
  Company Number: FR-AUROBINDO-AUR-APL-2020-036053

PATIENT
  Age: 1 Day

DRUGS (1)
  1. EFAVIRENZ FILM COATED TABLETS [Suspect]
     Active Substance: EFAVIRENZ
     Indication: HIV INFECTION
     Dosage: UNK (AT FIRST TRIMESTER)
     Route: 064

REACTIONS (4)
  - Foetal exposure during pregnancy [Recovered/Resolved]
  - Pachygyria [Unknown]
  - Cerebral ventricle dilatation [Unknown]
  - White matter lesion [Unknown]
